FAERS Safety Report 4830937-0 (Version None)
Quarter: 2005Q4

REPORT INFORMATION
  Report Type: 
  Country: None (occurrence: None)
  Receive Date: 20051114
  Receipt Date: 20051031
  Transmission Date: 20060501
  Serious: Yes (Other)
  Sender: FDA-Public Use
  Company Number: 2005141554

PATIENT
  Sex: Female

DRUGS (2)
  1. NICORETTE [Suspect]
     Dosage: TRANSDERMAL
     Route: 062
     Dates: start: 20050902
  2. DESOGESTREL (DESOGESTREL) [Suspect]
     Dosage: ORAL
     Route: 048
     Dates: start: 20050101

REACTIONS (2)
  - DRUG INTERACTION [None]
  - METRORRHAGIA [None]
